FAERS Safety Report 12295339 (Version 6)
Quarter: 2016Q3

REPORT INFORMATION
  Report Type: Spontaneous
  Country: JP (occurrence: JP)
  Receive Date: 20160422
  Receipt Date: 20160906
  Transmission Date: 20161109
  Serious: Yes (Hospitalization)
  Sender: FDA-Public Use
  Company Number: JP-ABBVIE-16P-087-1611511-00

PATIENT
  Age: 1 Year
  Sex: Male

DRUGS (3)
  1. ASVERIN (TIPEPIDINE HIBENZATE) [Concomitant]
     Active Substance: TIPEPIDINE HIBENZATE
     Indication: COUGH
     Route: 048
     Dates: start: 20150623, end: 20150630
  2. L-CARBOCYSTEINE [Concomitant]
     Active Substance: CARBOCYSTEINE
     Indication: COUGH
     Route: 048
     Dates: start: 20150623, end: 20150630
  3. CLARITH [Suspect]
     Active Substance: CLARITHROMYCIN
     Indication: PYREXIA
     Route: 048
     Dates: start: 20150627, end: 20150627

REACTIONS (1)
  - Erythema multiforme [Recovering/Resolving]

NARRATIVE: CASE EVENT DATE: 20150627
